FAERS Safety Report 16057082 (Version 1)
Quarter: 2019Q2

REPORT INFORMATION
  Report Type: Spontaneous
  Country: US (occurrence: US)
  Receive Date: 20190311
  Receipt Date: 20190311
  Transmission Date: 20190711
  Serious: Yes (Other)
  Sender: FDA-Public Use
  Company Number: None

PATIENT
  Age: 69 Year
  Sex: Female
  Weight: 111.6 kg

DRUGS (22)
  1. FUROSEMIDE. [Concomitant]
     Active Substance: FUROSEMIDE
  2. OXYCODONE/APAP [Concomitant]
     Active Substance: ACETAMINOPHEN\OXYCODONE HYDROCHLORIDE
  3. PROCHLORPERAZINE. [Concomitant]
     Active Substance: PROCHLORPERAZINE
  4. LIBRAX [Concomitant]
     Active Substance: CHLORDIAZEPOXIDE HYDROCHLORIDE\CLIDINIUM BROMIDE
  5. PAROXETINE. [Concomitant]
     Active Substance: PAROXETINE
  6. GENERLAC [Concomitant]
     Active Substance: LACTULOSE
  7. MELOXICAM. [Concomitant]
     Active Substance: MELOXICAM
  8. COENZYME Q10 [Concomitant]
     Active Substance: UBIDECARENONE
  9. MOVATIK [Concomitant]
  10. ZOLPIDEM [Concomitant]
     Active Substance: ZOLPIDEM\ZOLPIDEM TARTRATE
  11. ASPIRIN ADULT LOW DOSE [Concomitant]
     Active Substance: ASPIRIN
  12. COLACE [Concomitant]
     Active Substance: DOCUSATE SODIUM
  13. XARELTO [Concomitant]
     Active Substance: RIVAROXABAN
  14. IBRANCE [Suspect]
     Active Substance: PALBOCICLIB
     Indication: BREAST CANCER
     Route: 048
     Dates: start: 20181129
  15. CHROMIUM PICOLINATE MEGA [Concomitant]
  16. GABAPENTIN. [Concomitant]
     Active Substance: GABAPENTIN
  17. OMEPRAZOLE. [Concomitant]
     Active Substance: OMEPRAZOLE
  18. PROAIR HFA [Concomitant]
     Active Substance: ALBUTEROL SULFATE
  19. RAMIPRIL. [Concomitant]
     Active Substance: RAMIPRIL
  20. BENEFIBER [Concomitant]
     Active Substance: STARCH, WHEAT
  21. GLIPIZIDE. [Concomitant]
     Active Substance: GLIPIZIDE
  22. TRILIPIX [Concomitant]
     Active Substance: FENOFIBRIC ACID

REACTIONS (1)
  - Decreased appetite [None]
